FAERS Safety Report 13653287 (Version 1)
Quarter: 2017Q2

REPORT INFORMATION
  Report Type: Spontaneous
  Country: US (occurrence: US)
  Receive Date: 20170614
  Receipt Date: 20170614
  Transmission Date: 20170830
  Serious: Yes (Hospitalization)
  Sender: FDA-Public Use
  Company Number: US-ROCHE-1462248

PATIENT
  Age: 63 Year
  Sex: Female

DRUGS (3)
  1. XELODA [Suspect]
     Active Substance: CAPECITABINE
     Indication: BREAST CANCER
     Dosage: 2 TAB BID X 14 DAYS
     Route: 065
     Dates: start: 20140812, end: 20140816
  2. XELODA [Suspect]
     Active Substance: CAPECITABINE
     Dosage: FOR 14 DAYS
     Route: 065
     Dates: start: 20140812, end: 20140816
  3. TYKERB [Concomitant]
     Active Substance: LAPATINIB DITOSYLATE
     Indication: BREAST CANCER
     Route: 065
     Dates: start: 20140812, end: 20140816

REACTIONS (2)
  - Blood creatine increased [Unknown]
  - Chest pain [Unknown]

NARRATIVE: CASE EVENT DATE: 20140816
